FAERS Safety Report 6920764-2 (Version None)
Quarter: 2010Q3

REPORT INFORMATION
  Report Type: 
  Country: None (occurrence: None)
  Receive Date: 20100804
  Receipt Date: 20100525
  Transmission Date: 20110219
  Serious: No
  Sender: FDA-Public Use
  Company Number: 2010-1837

PATIENT
  Age: 32 Year
  Sex: Female
  Weight: 59.1 kg

DRUGS (6)
  1. SOMATULINE DEPOT [Suspect]
     Indication: ACROMEGALY
     Dosage: 60 MG (60 MG,1 IN 1 M), SUBCUTANEOUS
     Route: 058
     Dates: start: 20100201
  2. SYNTHROID [Concomitant]
  3. ADVAIR HFA [Concomitant]
  4. COMBIVENT (BREVA0 [Concomitant]
  5. LOESTERIN 24 (ALL OTHER THERAPEUTIC PRODUCTS) [Concomitant]
  6. VITAMIN B12 [Concomitant]

REACTIONS (4)
  - ABDOMINAL PAIN UPPER [None]
  - FEELING COLD [None]
  - NAUSEA [None]
  - VOMITING [None]
